FAERS Safety Report 9372924 (Version 1)
Quarter: 2013Q2

REPORT INFORMATION
  Report Type: Spontaneous
  Country: IL (occurrence: None)
  Receive Date: 20130624
  Receipt Date: 20130624
  Transmission Date: 20140414
  Serious: Yes (Other)
  Sender: FDA-Public Use
  Company Number: 20130317

PATIENT
  Age: 72 Year
  Sex: Male

DRUGS (3)
  1. VENOFER [Suspect]
     Indication: ANAEMIA
     Dosage: 200 MG IN 150 ML OVER
  2. EPOETIN BETA [Concomitant]
  3. FUROSEMIDE [Concomitant]

REACTIONS (5)
  - Decreased appetite [None]
  - Nausea [None]
  - Weight decreased [None]
  - Dialysis [None]
  - Blood creatinine increased [None]
